FAERS Safety Report 18769464 (Version 4)
Quarter: 2021Q2

REPORT INFORMATION
  Report Type: Spontaneous
  Country: US (occurrence: US)
  Receive Date: 20210121
  Receipt Date: 20210422
  Transmission Date: 20210717
  Serious: Yes (Hospitalization, Other)
  Sender: FDA-Public Use
  Company Number: US-BAYER-2021-021044

PATIENT
  Age: 43 Year
  Sex: Female

DRUGS (1)
  1. MIRENA [Suspect]
     Active Substance: LEVONORGESTREL
     Indication: HEAVY MENSTRUAL BLEEDING
     Dosage: 20 ?G PER DAY, CONTINUOUSLY
     Route: 015

REACTIONS (17)
  - Constipation [Recovered/Resolved]
  - Mood swings [None]
  - Urinary retention [Not Recovered/Not Resolved]
  - Abdominal pain upper [None]
  - Muscular weakness [Not Recovered/Not Resolved]
  - Embedded device [None]
  - Pulmonary pain [None]
  - Genital haemorrhage [Recovered/Resolved]
  - Intentional self-injury [None]
  - Swelling [None]
  - Device expulsion [None]
  - Aggression [Not Recovered/Not Resolved]
  - Device use issue [None]
  - Epilepsy [None]
  - Hormone level abnormal [Not Recovered/Not Resolved]
  - Abdominal pain lower [None]
  - Multiple allergies [None]

NARRATIVE: CASE EVENT DATE: 202101
